FAERS Safety Report 11127613 (Version 1)
Quarter: 2015Q2

REPORT INFORMATION
  Report Type: Spontaneous
  Country: US (occurrence: US)
  Receive Date: 20150521
  Receipt Date: 20150521
  Transmission Date: 20150821
  Serious: Yes (Other)
  Sender: FDA-Public Use
  Company Number: US-JNJFOC-20150509859

PATIENT

DRUGS (1)
  1. DOXORUBICIN [Suspect]
     Active Substance: DOXORUBICIN
     Indication: SARCOMA
     Dosage: 1.4 MG/KG FOR LE, 0.5 MG/KG FOR UE.
     Route: 042

REACTIONS (4)
  - Muscle necrosis [Unknown]
  - Neuromuscular toxicity [Unknown]
  - Blood creatine phosphokinase increased [Unknown]
  - Product use issue [Unknown]
